FAERS Safety Report 11146310 (Version 1)
Quarter: 2015Q2

REPORT INFORMATION
  Report Type: Spontaneous
  Country: FR (occurrence: FR)
  Receive Date: 20150528
  Receipt Date: 20150528
  Transmission Date: 20150821
  Serious: Yes (Hospitalization)
  Sender: FDA-Public Use
  Company Number: FR-PFIZER INC-2015174292

PATIENT
  Age: 71 Year
  Sex: Male

DRUGS (6)
  1. PREVISCAN [Interacting]
     Active Substance: FLUINDIONE
     Dosage: 10 MG, UNK
     Route: 048
     Dates: start: 2015
  2. BACTRIM [Interacting]
     Active Substance: SULFAMETHOXAZOLE\TRIMETHOPRIM
     Dosage: 4 DF, 3X/DAY
     Route: 041
     Dates: start: 20150126, end: 20150128
  3. DALACINE [Interacting]
     Active Substance: CLINDAMYCIN HYDROCHLORIDE
     Dosage: 600 MG, 3X/DAY
     Route: 048
     Dates: start: 20150129, end: 20150211
  4. PREVISCAN [Interacting]
     Active Substance: FLUINDIONE
     Dosage: 10 MG, 1X/DAY
     Route: 048
     Dates: end: 20150203
  5. DALACINE [Suspect]
     Active Substance: CLINDAMYCIN HYDROCHLORIDE
     Dosage: 1.8 G, DAILY
     Route: 041
     Dates: start: 20150126, end: 20150128
  6. BACTRIM [Interacting]
     Active Substance: SULFAMETHOXAZOLE\TRIMETHOPRIM
     Dosage: 3 DF, DAILY
     Route: 048
     Dates: start: 20150129, end: 20150211

REACTIONS (2)
  - International normalised ratio increased [Recovered/Resolved]
  - Drug interaction [Recovered/Resolved]

NARRATIVE: CASE EVENT DATE: 20150127
